FAERS Safety Report 26109202 (Version 1)
Quarter: 2025Q4

REPORT INFORMATION
  Report Type: Spontaneous
  Country: CA (occurrence: CA)
  Receive Date: 20251201
  Receipt Date: 20251201
  Transmission Date: 20260118
  Serious: Yes (Death, Other)
  Sender: PFIZER
  Company Number: CA-PFIZER INC-202500234193

PATIENT
  Age: 85 Year
  Sex: Male

DRUGS (1)
  1. VYNDAMAX [Suspect]
     Active Substance: TAFAMIDIS
     Indication: Cardiac amyloidosis
     Dosage: 61 MG, 1X/DAY
     Route: 048
     Dates: start: 20240624

REACTIONS (1)
  - Death [Fatal]

NARRATIVE: CASE EVENT DATE: 20251115
